FAERS Safety Report 4559800-X (Version None)
Quarter: 2005Q1

REPORT INFORMATION
  Report Type: 
  Country: None (occurrence: None)
  Receive Date: 20050107
  Receipt Date: 20041115
  Transmission Date: 20050727
  Serious: No
  Sender: FDA-Public Use
  Company Number: MK200411-0131-1

PATIENT
  Age: 70 Year
  Sex: Male

DRUGS (1)
  1. NEUTROSPEC [Suspect]
     Indication: INFECTION
     Dosage: 20 MCI, ONCE
     Dates: start: 20041115, end: 20041115

REACTIONS (4)
  - FLUSHING [None]
  - HYPERHIDROSIS [None]
  - NAUSEA [None]
  - PALLOR [None]
